FAERS Safety Report 19778567 (Version 1)
Quarter: 2021Q3

REPORT INFORMATION
  Report Type: Spontaneous
  Country: ES (occurrence: ES)
  Receive Date: 20210902
  Receipt Date: 20210902
  Transmission Date: 20211014
  Serious: Yes (Life-Threatening, Hospitalization, Other)
  Sender: FDA-Public Use
  Company Number: ES-AUROBINDO-AUR-APL-2021-037242

PATIENT
  Age: 72 Year
  Sex: Male
  Weight: 72.2 kg

DRUGS (3)
  1. FUROSEMIDE. [Suspect]
     Active Substance: FUROSEMIDE
     Indication: CARDIAC FAILURE
     Dosage: 120 MILLIGRAM, ONCE A DAY
     Route: 048
     Dates: start: 20190909
  2. FUROSEMIDE. [Interacting]
     Active Substance: FUROSEMIDE
     Dosage: 100 MILLIGRAM, ONCE A DAY (3 DAYS (APRIL 28, 29 AND 30))
     Route: 042
     Dates: start: 20210428, end: 20210430
  3. EDEMOX [Interacting]
     Active Substance: ACETAZOLAMIDE
     Indication: CARDIAC FAILURE
     Dosage: 125 MILLIGRAM, ONCE A DAY (0?0?1/2)
     Route: 048
     Dates: start: 20210430, end: 20210516

REACTIONS (1)
  - Encephalopathy [Recovered/Resolved]

NARRATIVE: CASE EVENT DATE: 20210508
